FAERS Safety Report 13739063 (Version 1)
Quarter: 2017Q3

REPORT INFORMATION
  Report Type: Report from Study
  Country: US (occurrence: US)
  Receive Date: 20170710
  Receipt Date: 20170710
  Transmission Date: 20171127
  Serious: Yes (Other)
  Sender: FDA-Public Use
  Company Number: US-SAOL THERAPEUTICS-2017SAO00859

PATIENT
  Age: 58 Year
  Sex: Male

DRUGS (19)
  1. MORPHINE [Suspect]
     Active Substance: MORPHINE
     Dosage: 4.527 MG, \DAY
     Route: 037
     Dates: start: 20170309, end: 20170406
  2. COMPOUNDED BACLOFEN [Suspect]
     Active Substance: BACLOFEN
     Dosage: 50.02 ?G, \DAY
     Route: 037
     Dates: start: 20160920, end: 20161103
  3. BUPIVACAINE. [Suspect]
     Active Substance: BUPIVACAINE
     Dosage: 15.006 MG, \DAY
     Route: 037
     Dates: start: 20160920, end: 20161103
  4. BUPIVACAINE. [Suspect]
     Active Substance: BUPIVACAINE
     Dosage: 9.987 MG, \DAY
     Route: 037
     Dates: start: 20170406
  5. MORPHINE [Suspect]
     Active Substance: MORPHINE
     Dosage: 2.5009 MG, \DAY
     Route: 037
     Dates: start: 20160920, end: 20161103
  6. COMPOUNDED BACLOFEN [Suspect]
     Active Substance: BACLOFEN
     Dosage: UNK
  7. BUPIVACAINE. [Suspect]
     Active Substance: BUPIVACAINE
     Dosage: 20.02 MG, \DAY
     Route: 037
     Dates: start: 20170406
  8. MORPHINE [Suspect]
     Active Substance: MORPHINE
     Dosage: 4.018 MG, \DAY
     Route: 037
     Dates: start: 20160920, end: 20161103
  9. COMPOUNDED BACLOFEN [Suspect]
     Active Substance: BACLOFEN
     Dosage: 266.69 ?G, \DAY
     Route: 037
     Dates: start: 20170406
  10. FENTANYL. [Suspect]
     Active Substance: FENTANYL
     Dosage: 24.968 ?G, \DAY
     Route: 037
     Dates: start: 20170406
  11. FENTANYL. [Suspect]
     Active Substance: FENTANYL
     Dosage: 50.005 ?G, \DAY
     Route: 037
     Dates: start: 20170406
  12. BUPIVACAINE. [Suspect]
     Active Substance: BUPIVACAINE
     Dosage: 27.437 MG, \DAY
     Dates: start: 20170309, end: 20170406
  13. COMPOUNDED BACLOFEN [Suspect]
     Active Substance: BACLOFEN
     Dosage: 137.19 ?G, \DAY
     Route: 037
     Dates: start: 20170309, end: 20170406
  14. COMPOUNDED BACLOFEN [Suspect]
     Active Substance: BACLOFEN
     Dosage: 80.36 ?G, \DAY
     Route: 037
     Dates: start: 20160920, end: 20161103
  15. BUPIVACAINE. [Suspect]
     Active Substance: BUPIVACAINE
     Dosage: 24.108 MG, \DAY
     Route: 037
     Dates: start: 20160920, end: 20161103
  16. BUPIVACAINE. [Suspect]
     Active Substance: BUPIVACAINE
     Dosage: 18.391 MG, \DAY
     Route: 037
     Dates: start: 20170309, end: 20170406
  17. COMPOUNDED BACLOFEN [Suspect]
     Active Substance: BACLOFEN
     Dosage: 91.96 ?G, \DAY
     Route: 037
     Dates: start: 20170309, end: 20170406
  18. COMPOUNDED BACLOFEN [Suspect]
     Active Substance: BACLOFEN
     Dosage: 133.16 ?G, \DAY
     Route: 037
     Dates: start: 20170406
  19. MORPHINE [Suspect]
     Active Substance: MORPHINE
     Dosage: 3.0652 MG, \DAY
     Route: 037
     Dates: start: 20170309, end: 20170406

REACTIONS (7)
  - Drug withdrawal syndrome [Recovered/Resolved]
  - Nausea [Recovered/Resolved]
  - Tremor [Recovered/Resolved]
  - Fatigue [Recovered/Resolved]
  - Catheter site pain [Recovered/Resolved]
  - Pain [Recovered/Resolved]
  - Implant site pain [Recovered/Resolved]

NARRATIVE: CASE EVENT DATE: 20161103
